FAERS Safety Report 4330746-5 (Version None)
Quarter: 2004Q1

REPORT INFORMATION
  Report Type: 
  Country: None (occurrence: None)
  Receive Date: 20040331
  Receipt Date: 20040317
  Transmission Date: 20041129
  Serious: Yes (Hospitalization)
  Sender: FDA-Public Use
  Company Number: F04200400072

PATIENT
  Age: 62 Year
  Sex: Male

DRUGS (3)
  1. ELOXATIN [Suspect]
     Indication: SIGNET-RING CELL CARCINOMA
     Dosage: 50 MG/M2 OTHER INTRAVENOUS DRIP
     Route: 041
     Dates: start: 20031112, end: 20031112
  2. LEUCOVORIN CALCIUM [Suspect]
     Indication: SIGNET-RING CELL CARCINOMA
     Dosage: 500 MG/M2 OTHER INTRAVENOUS DRIP
     Route: 041
     Dates: start: 20031112, end: 20031112
  3. FLUOROURACIL [Suspect]
     Indication: SIGNET-RING CELL CARCINOMA
     Dosage: 2000 MG/M2 OTHER INTRAVENOUS DRIP
     Route: 041
     Dates: start: 20031112, end: 20031112

REACTIONS (3)
  - DRUG TOXICITY [None]
  - PERIPHERAL SENSORIMOTOR NEUROPATHY [None]
  - PERITONITIS [None]
